FAERS Safety Report 6785458-5 (Version None)
Quarter: 2010Q2

REPORT INFORMATION
  Report Type: 
  Country: None (occurrence: None)
  Receive Date: 20100623
  Receipt Date: 20100615
  Transmission Date: 20101027
  Serious: No
  Sender: FDA-Public Use
  Company Number: US-BIOGENIDEC-2010BI019878

PATIENT
  Age: 43 Year
  Sex: Female

DRUGS (5)
  1. AVONEX [Suspect]
     Indication: MULTIPLE SCLEROSIS
     Route: 030
     Dates: start: 20100213
  2. PERCOCET [Concomitant]
     Indication: BACK PAIN
  3. PERCOCET [Concomitant]
     Indication: PAIN
  4. XANAX [Concomitant]
     Indication: BACK PAIN
  5. XANAX [Concomitant]
     Indication: PAIN

REACTIONS (5)
  - FACIAL SPASM [None]
  - HYPOAESTHESIA [None]
  - MUSCLE SPASMS [None]
  - PAIN [None]
  - WEIGHT DECREASED [None]
